FAERS Safety Report 18972750 (Version 1)
Quarter: 2021Q1

REPORT INFORMATION
  Report Type: Spontaneous
  Country: US (occurrence: US)
  Receive Date: 20210305
  Receipt Date: 20210305
  Transmission Date: 20210420
  Serious: No
  Sender: FDA-Public Use
  Company Number: US-TEVA-2021-US-1882936

PATIENT
  Age: 66 Year
  Sex: Female

DRUGS (16)
  1. HYDROXYZINE HCL 50 MG [Concomitant]
     Route: 048
  2. CHLORTALIDONE 25 MG [Concomitant]
     Route: 048
  3. PRAZOSIN HCL 5 MG [Concomitant]
     Route: 048
  4. ROPINIROLE HCL 1  MG [Concomitant]
     Route: 048
  5. SINGULAIR [Concomitant]
     Active Substance: MONTELUKAST SODIUM
     Route: 048
  6. PROPRANOLOL HCL ER 120 MG [Concomitant]
     Dosage: EXTENDED RELEASE 24 HOUR
     Route: 048
  7. SYMBICORT INHALATION AEROSOL 160?4.5 MCG/ACT [Concomitant]
  8. AUSTEDO [Suspect]
     Active Substance: DEUTETRABENAZINE
     Route: 065
     Dates: start: 20210106
  9. DICYCLOMINE HCL 20 MG [Concomitant]
     Route: 048
  10. PROAIR HFA [Concomitant]
     Active Substance: ALBUTEROL SULFATE
     Dosage: INHALATION AEROSOL SOLUTION
  11. IRON 325 (65 FE) MG [Concomitant]
     Route: 048
  12. AUSTEDO [Suspect]
     Active Substance: DEUTETRABENAZINE
     Indication: TARDIVE DYSKINESIA
     Dosage: 18 MILLIGRAM DAILY; BID
     Route: 048
     Dates: start: 202102
  13. VENLAFAXINE HCL 37.5 MG [Concomitant]
     Route: 048
  14. LOSARTAN POTASSIUM 25 MG [Concomitant]
     Active Substance: LOSARTAN POTASSIUM
     Route: 048
  15. QUETIAPINE FUMARATE 300 MG [Concomitant]
     Route: 048
  16. SPIRIVA [Concomitant]
     Active Substance: TIOTROPIUM BROMIDE MONOHYDRATE
     Route: 055

REACTIONS (3)
  - Disturbance in attention [Unknown]
  - Memory impairment [Unknown]
  - Memory impairment [Unknown]

NARRATIVE: CASE EVENT DATE: 202102
